FAERS Safety Report 6940737-3 (Version None)
Quarter: 2010Q3

REPORT INFORMATION
  Report Type: 
  Country: None (occurrence: None)
  Receive Date: 20100825
  Receipt Date: 20100819
  Transmission Date: 20110219
  Serious: Yes (Life-Threatening)
  Sender: FDA-Public Use
  Company Number: JP-ROCHE-722594

PATIENT
  Sex: Female
  Weight: 45 kg

DRUGS (22)
  1. TOCILIZUMAB [Suspect]
     Indication: RHEUMATOID ARTHRITIS
     Route: 041
     Dates: start: 20080612, end: 20080612
  2. TOCILIZUMAB [Suspect]
     Route: 041
     Dates: start: 20080710, end: 20100710
  3. TOCILIZUMAB [Suspect]
     Route: 041
     Dates: start: 20080807, end: 20080807
  4. TOCILIZUMAB [Suspect]
     Route: 041
     Dates: start: 20080904, end: 20080904
  5. TOCILIZUMAB [Suspect]
     Route: 041
     Dates: start: 20081002, end: 20081002
  6. TOCILIZUMAB [Suspect]
     Route: 041
     Dates: start: 20081030, end: 20081030
  7. TOCILIZUMAB [Suspect]
     Route: 041
     Dates: start: 20081201, end: 20081201
  8. TOCILIZUMAB [Suspect]
     Route: 041
     Dates: start: 20081229, end: 20081229
  9. TOCILIZUMAB [Suspect]
     Route: 041
     Dates: start: 20090126, end: 20090126
  10. TOCILIZUMAB [Suspect]
     Route: 041
     Dates: start: 20090223, end: 20090223
  11. TOCILIZUMAB [Suspect]
     Route: 041
     Dates: start: 20090330, end: 20090330
  12. TOCILIZUMAB [Suspect]
     Route: 041
     Dates: start: 20090427, end: 20090427
  13. TOCILIZUMAB [Suspect]
     Route: 041
     Dates: start: 20090525, end: 20090525
  14. TOCILIZUMAB [Suspect]
     Route: 041
     Dates: start: 20090629, end: 20100722
  15. RHEUMATREX [Concomitant]
     Dosage: NOTE: AMOUNT 2
     Route: 048
  16. PREDONINE [Concomitant]
     Route: 048
     Dates: start: 20080820
  17. PREDONINE [Concomitant]
     Route: 048
     Dates: start: 20080821
  18. IRINATOLON [Concomitant]
     Route: 048
  19. GASPORT [Concomitant]
     Route: 048
  20. KETOPROFEN [Concomitant]
     Dosage: FORM: TAPE.
     Route: 062
  21. MECOBALAMIN [Concomitant]
     Route: 048
  22. PYDOXAL [Concomitant]
     Dosage: DRUG REPORTED: PYDOXAL TAB.
     Route: 048

REACTIONS (2)
  - BREAST CANCER [None]
  - ORAL DISCOMFORT [None]
